FAERS Safety Report 9282811 (Version 3)
Quarter: 2014Q1

REPORT INFORMATION
  Report Type: Spontaneous
  Country: US (occurrence: US)
  Receive Date: 20130510
  Receipt Date: 20140307
  Transmission Date: 20141002
  Serious: Yes (Hospitalization)
  Sender: FDA-Public Use
  Company Number: US-BAYER-2013-056596

PATIENT
  Age: 40 Year
  Sex: Female
  Weight: 93.88 kg

DRUGS (7)
  1. YAZ [Suspect]
     Indication: DEPRESSION
     Dosage: UNK
     Dates: start: 20090722, end: 20100703
  2. YAZ [Suspect]
     Indication: CONTRACEPTION
  3. OCELLA [Suspect]
     Indication: CONTRACEPTION
     Dosage: UNK
     Dates: start: 20090722, end: 20100703
  4. YASMIN [Suspect]
     Indication: CONTRACEPTION
     Dosage: UNK
     Dates: start: 20090722, end: 20100703
  5. ZOCOR [Concomitant]
  6. ALLEGRA [Concomitant]
  7. XYZAL [Concomitant]
     Dosage: 5 MG, QD
     Route: 048

REACTIONS (6)
  - Cerebrovascular accident [None]
  - Cerebral infarction [None]
  - Cerebral artery occlusion [None]
  - Injury [None]
  - Pain [None]
  - Pain [None]
